FAERS Safety Report 7637777-8 (Version None)
Quarter: 2011Q3

REPORT INFORMATION
  Report Type: 
  Country: None (occurrence: None)
  Receive Date: 20110727
  Receipt Date: 20110707
  Transmission Date: 20111222
  Serious: Yes (Other)
  Sender: FDA-Public Use
  Company Number: US-JNJCP-30000061763

PATIENT
  Age: 74 Year
  Sex: Female
  Weight: 79 kg

DRUGS (3)
  1. LINNASPROL [Suspect]
     Dosage: 20MG, ONCE DAILY
  2. NTG RAPID WRINKLE REPAIR MOIST SPF30 1OZ USA 07050102121 7050102121USA [Suspect]
     Dosage: SMALL SQUIRT END OF FINGER AND RUBBED IN, ONCE DAILY
     Route: 061
     Dates: start: 20110701, end: 20110703
  3. LINNASPROL [Concomitant]

REACTIONS (2)
  - APPLICATION SITE SWELLING [None]
  - APPLICATION SITE PAIN [None]
